FAERS Safety Report 5810561-3 (Version None)
Quarter: 2008Q3

REPORT INFORMATION
  Report Type: 
  Country: None (occurrence: None)
  Receive Date: 20080715
  Receipt Date: 20080708
  Transmission Date: 20090109
  Serious: Yes (Other)
  Sender: FDA-Public Use
  Company Number: US-AMGEN-QUU291156

PATIENT
  Sex: Female
  Weight: 45.9 kg

DRUGS (3)
  1. ENBREL [Suspect]
     Indication: RHEUMATOID ARTHRITIS
     Route: 058
     Dates: start: 20070827, end: 20080512
  2. FOSAMAX [Concomitant]
     Dates: start: 20080117
  3. PREVACID [Concomitant]
     Dates: start: 20080428

REACTIONS (5)
  - COMPUTERISED TOMOGRAM THORAX ABNORMAL [None]
  - COUGH [None]
  - PSEUDOMONAS INFECTION [None]
  - RESPIRATORY TRACT CONGESTION [None]
  - TUBERCULIN TEST POSITIVE [None]
